FAERS Safety Report 18024937 (Version 2)
Quarter: 2021Q2

REPORT INFORMATION
  Report Type: Spontaneous
  Country: US (occurrence: US)
  Receive Date: 20200715
  Receipt Date: 20210511
  Transmission Date: 20210717
  Serious: Yes (Other)
  Sender: FDA-Public Use
  Company Number: US-GILEAD-2020-0483119

PATIENT
  Sex: Male

DRUGS (37)
  1. CYCLOBENZAPRINE. [Concomitant]
     Active Substance: CYCLOBENZAPRINE
  2. HIBICLENS [Concomitant]
     Active Substance: CHLORHEXIDINE GLUCONATE
  3. PREVPAC [Concomitant]
     Active Substance: AMOXICILLIN\CLARITHROMYCIN\LANSOPRAZOLE
  4. TRAZODONE [Concomitant]
     Active Substance: TRAZODONE HYDROCHLORIDE
  5. CIPRO HC [Concomitant]
     Active Substance: CIPROFLOXACIN HYDROCHLORIDE\HYDROCORTISONE
  6. ENSURE HIGH PROTEIN [Concomitant]
  7. CLARITHROMYCIN. [Concomitant]
     Active Substance: CLARITHROMYCIN
  8. LANSOPRAZOLE. [Concomitant]
     Active Substance: LANSOPRAZOLE
  9. VIAGRA [Concomitant]
     Active Substance: SILDENAFIL CITRATE
  10. MAGNESIUM OXIDE. [Concomitant]
     Active Substance: MAGNESIUM OXIDE
  11. FAMCICLOVIR. [Concomitant]
     Active Substance: FAMCICLOVIR
  12. DOXYCYCLINE. [Concomitant]
     Active Substance: DOXYCYCLINE
  13. ACETAMINOPHEN + COD. PHOSP. [Concomitant]
     Active Substance: ACETAMINOPHEN\CODEINE PHOSPHATE
  14. NYSTATIN. [Concomitant]
     Active Substance: NYSTATIN
  15. WARFARIN [Concomitant]
     Active Substance: WARFARIN
  16. AMOXICILLIN. [Concomitant]
     Active Substance: AMOXICILLIN
  17. FLUCONAZOLE. [Concomitant]
     Active Substance: FLUCONAZOLE
  18. OXYCODONE [Concomitant]
     Active Substance: OXYCODONE
  19. FLUVIRINE [Concomitant]
  20. HYDROXYZINE HCL [Concomitant]
     Active Substance: HYDROXYZINE HYDROCHLORIDE
  21. TOBRAMYCIN + DEXAMETHASONE [Concomitant]
     Active Substance: DEXAMETHASONE\TOBRAMYCIN
  22. STRIBILD [Suspect]
     Active Substance: COBICISTAT\ELVITEGRAVIR\EMTRICITABINE\TENOFOVIR DISOPROXIL FUMARATE
     Indication: PRODUCT USED FOR UNKNOWN INDICATION
     Dosage: UNK
     Route: 048
     Dates: start: 201408, end: 2016
  23. SULFAMETH/TRIMETH [Concomitant]
     Active Substance: SULFAMETHOXAZOLE\TRIMETHOPRIM
  24. SPIRONOLACTONE. [Concomitant]
     Active Substance: SPIRONOLACTONE
  25. NEOMYCIN AND POLYMYXIN B SULFATES AND HYDROCORTISONE [Concomitant]
     Active Substance: HYDROCORTISONE\NEOMYCIN SULFATE\POLYMYXIN B SULFATE
  26. FUROSEMIDE. [Concomitant]
     Active Substance: FUROSEMIDE
  27. PNEUMOVAX 23 [Concomitant]
     Active Substance: PNEUMOCOCCAL VACCINE, POLYVALENT 23
  28. NAPROXEN. [Concomitant]
     Active Substance: NAPROXEN
  29. LEVOFLOXACIN. [Concomitant]
     Active Substance: LEVOFLOXACIN
  30. DOXYCYCLINE HYCLATE. [Concomitant]
     Active Substance: DOXYCYCLINE HYCLATE
  31. HARVONI [Concomitant]
     Active Substance: LEDIPASVIR\SOFOSBUVIR
  32. FERROUS SULPHATE COMPOUND [Concomitant]
  33. CEPHALEXIN [CEFALEXIN] [Concomitant]
     Active Substance: CEPHALEXIN
  34. AZITHROMYCIN ANHYDROUS. [Concomitant]
     Active Substance: AZITHROMYCIN ANHYDROUS
  35. IBUPROFEN. [Concomitant]
     Active Substance: IBUPROFEN
  36. ENOXAPARIN [Concomitant]
     Active Substance: ENOXAPARIN
  37. CIPROFLOX PUREN [Concomitant]

REACTIONS (1)
  - Renal failure [Unknown]
